FAERS Safety Report 6258744-5 (Version None)
Quarter: 2009Q3

REPORT INFORMATION
  Report Type: 
  Country: None (occurrence: None)
  Receive Date: 20090707
  Receipt Date: 20090701
  Transmission Date: 20100115
  Serious: Yes (Hospitalization)
  Sender: FDA-Public Use
  Company Number: B0581407A

PATIENT
  Sex: Female

DRUGS (16)
  1. AUGMENTIN [Suspect]
     Indication: DRUG USE FOR UNKNOWN INDICATION
     Route: 065
     Dates: start: 20090101, end: 20090101
  2. AERIUS [Concomitant]
     Route: 065
  3. NOVONORM [Concomitant]
     Route: 065
  4. STABLON [Concomitant]
     Route: 065
  5. TAHOR [Concomitant]
     Route: 065
  6. PREVISCAN [Concomitant]
     Route: 065
  7. CALCIDIA [Concomitant]
     Route: 065
  8. NEXIUM [Concomitant]
     Route: 065
  9. IMOVANE [Concomitant]
     Route: 065
  10. CARDENSIEL [Concomitant]
     Route: 065
  11. ALLOPURINOL [Concomitant]
     Route: 065
  12. HEXAQUINE [Concomitant]
     Route: 065
  13. EMLA [Concomitant]
     Route: 065
  14. LEVOTHYROX [Concomitant]
     Route: 065
  15. KAYEXALATE [Concomitant]
     Route: 065
  16. CORDARONE [Concomitant]
     Route: 065

REACTIONS (7)
  - CELL DEATH [None]
  - CHOLESTASIS [None]
  - FAECES DISCOLOURED [None]
  - GASTROINTESTINAL DISORDER [None]
  - JAUNDICE [None]
  - LIVER DISORDER [None]
  - PRURITUS GENERALISED [None]
